FAERS Safety Report 5802193-8 (Version None)
Quarter: 2008Q3

REPORT INFORMATION
  Report Type: 
  Country: None (occurrence: None)
  Receive Date: 20080702
  Receipt Date: 20080619
  Transmission Date: 20090109
  Serious: Yes (Hospitalization)
  Sender: FDA-Public Use
  Company Number: 2008S1010586

PATIENT
  Age: 16 Year
  Sex: Female

DRUGS (6)
  1. PHENYTOIN [Suspect]
     Indication: CONVULSION
     Dosage: 20 MG/KG; INTRAVENOUS BOLUS : 140 MG: 180 MG
     Route: 040
  2. PHENYTOIN [Suspect]
     Indication: STATUS EPILEPTICUS
     Dosage: 20 MG/KG; INTRAVENOUS BOLUS : 140 MG: 180 MG
     Route: 040
  3. PHENOBARBITAL TAB [Concomitant]
  4. CARBAMAZEPINE [Concomitant]
  5. ZONISAMIDE [Concomitant]
  6. PHENOBARBITAL TAB [Concomitant]

REACTIONS (7)
  - ABDOMINAL DISTENSION [None]
  - ASPARTATE AMINOTRANSFERASE INCREASED [None]
  - BLOOD LACTATE DEHYDROGENASE INCREASED [None]
  - COMPLEX PARTIAL SEIZURES [None]
  - GASTROINTESTINAL HYPOMOTILITY [None]
  - PORTAL VENOUS GAS [None]
  - PROTEIN TOTAL INCREASED [None]
